FAERS Safety Report 14363091 (Version 1)
Quarter: 2018Q1

REPORT INFORMATION
  Report Type: Spontaneous
  Country: US (occurrence: US)
  Receive Date: 20180108
  Receipt Date: 20180108
  Transmission Date: 20180509
  Serious: No
  Sender: FDA-Public Use
  Company Number: US-ALLERGAN-1715451US

PATIENT
  Sex: Female

DRUGS (2)
  1. BYSTOLIC [Suspect]
     Active Substance: NEBIVOLOL HYDROCHLORIDE
     Indication: HEART RATE
     Dosage: 2.5 MG, QD
     Route: 048
  2. BYSTOLIC [Suspect]
     Active Substance: NEBIVOLOL HYDROCHLORIDE
     Dosage: 5 MG, BID
     Route: 048

REACTIONS (6)
  - Heart rate increased [Recovered/Resolved]
  - Wrong technique in product usage process [Unknown]
  - Off label use [Unknown]
  - Drug prescribing error [Unknown]
  - Hypoaesthesia [Recovered/Resolved]
  - Inappropriate schedule of drug administration [Unknown]
